FAERS Safety Report 7581145-4 (Version None)
Quarter: 2011Q2

REPORT INFORMATION
  Report Type: 
  Country: None (occurrence: None)
  Receive Date: 20110629
  Receipt Date: 20110622
  Transmission Date: 20111010
  Serious: Yes (Hospitalization)
  Sender: FDA-Public Use
  Company Number: IN-PFIZER INC-2011139864

PATIENT
  Age: 39 Year
  Sex: Male

DRUGS (3)
  1. CELLCEPT [Suspect]
     Dosage: UNK
     Dates: start: 20070531
  2. PREDNISOLONE [Suspect]
     Dosage: UNK
     Dates: start: 20070601
  3. CYCLOSPORINE [Suspect]
     Indication: RENAL TRANSPLANT
     Dosage: 225 MG, 1X/DAY
     Route: 048
     Dates: start: 20070601

REACTIONS (1)
  - GASTROENTERITIS [None]
